FAERS Safety Report 16728795 (Version 2)
Quarter: 2019Q3

REPORT INFORMATION
  Report Type: Report from Study
  Country: ES (occurrence: ES)
  Receive Date: 20190822
  Receipt Date: 20190910
  Transmission Date: 20191005
  Serious: Yes (Other)
  Sender: FDA-Public Use
  Company Number: ES-ROCHE-2387836

PATIENT
  Age: 48 Year
  Sex: Female

DRUGS (1)
  1. RITUXIMAB. [Suspect]
     Active Substance: RITUXIMAB
     Indication: CRYOGLOBULINAEMIA
     Route: 042

REACTIONS (4)
  - Hepatic enzyme increased [Unknown]
  - Off label use [Unknown]
  - Thrombocytopenia [Unknown]
  - Intentional product use issue [Unknown]
